FAERS Safety Report 5346358-0 (Version None)
Quarter: 2007Q2

REPORT INFORMATION
  Report Type: 
  Country: None (occurrence: None)
  Receive Date: 20070605
  Receipt Date: 20070525
  Transmission Date: 20071010
  Serious: Yes (Death, Other)
  Sender: FDA-Public Use
  Company Number: MZ-BOEHRINGER INGELHEIM PHARMACEUTICALS, INC.-2007-DE-03123GD

PATIENT

DRUGS (3)
  1. NEVIRAPINE [Suspect]
     Indication: HIV INFECTION
     Route: 048
  2. ZIDOVUDINE [Suspect]
     Indication: HIV INFECTION
     Route: 048
  3. LAMIVUDINE [Suspect]
     Indication: HIV INFECTION
     Route: 048

REACTIONS (4)
  - ANAEMIA [None]
  - DEATH [None]
  - HEPATOTOXICITY [None]
  - RASH [None]
